FAERS Safety Report 10695570 (Version 1)
Quarter: 2015Q1

REPORT INFORMATION
  Report Type: Spontaneous
  Country: US (occurrence: US)
  Receive Date: 20150107
  Receipt Date: 20150107
  Transmission Date: 20150721
  Serious: No
  Sender: FDA-Public Use
  Company Number: US-GILEAD-2015-0130488

PATIENT
  Age: 76 Year
  Sex: Female

DRUGS (2)
  1. HUMALOG [Concomitant]
     Active Substance: INSULIN LISPRO
  2. LETAIRIS [Suspect]
     Active Substance: AMBRISENTAN
     Indication: PULMONARY ARTERIAL HYPERTENSION
     Dosage: 5 MG, QD
     Route: 065
     Dates: start: 20141213

REACTIONS (1)
  - Peripheral coldness [Not Recovered/Not Resolved]

NARRATIVE: CASE EVENT DATE: 20141220
